FAERS Safety Report 6789849-8 (Version None)
Quarter: 2010Q2

REPORT INFORMATION
  Report Type: 
  Country: None (occurrence: None)
  Receive Date: 20100624
  Receipt Date: 20100617
  Transmission Date: 20101027
  Serious: Yes (Death, Hospitalization)
  Sender: FDA-Public Use
  Company Number: PHHY2010JP38296

PATIENT
  Sex: Female
  Weight: 46 kg

DRUGS (32)
  1. RHUMAB-E25 T34927+VIAL [Suspect]
     Indication: ASTHMA
     Dosage: 150 MG, QMO
     Route: 058
     Dates: start: 20090617
  2. RHUMAB-E25 T34927+VIAL [Suspect]
     Dosage: UNK
     Route: 058
     Dates: start: 20090715
  3. RHUMAB-E25 T34927+VIAL [Suspect]
     Dosage: UNK
     Route: 058
     Dates: start: 20090812
  4. RHUMAB-E25 T34927+VIAL [Suspect]
     Dosage: UNK
     Dates: start: 20100227, end: 20100227
  5. RHUMAB-E25 T34927+VIAL [Suspect]
     Dosage: UNK
     Dates: start: 20091204
  6. RHUMAB-E25 T34927+VIAL [Suspect]
     Dosage: UNK
     Dates: start: 20091230
  7. RHUMAB-E25 T34927+VIAL [Suspect]
     Dosage: UNK
     Dates: start: 20100127
  8. RHUMAB-E25 T34927+VIAL [Suspect]
     Dosage: UNK
     Dates: start: 20100227
  9. COMTAN [Suspect]
     Indication: PARKINSON'S DISEASE
     Dosage: 500 MG
     Route: 048
     Dates: start: 20081105, end: 20090908
  10. COMTAN [Suspect]
     Dosage: 400 MG
     Route: 048
     Dates: start: 20090909, end: 20100227
  11. PRAMIPEXOLE [Suspect]
     Dosage: 4 MG
     Route: 048
     Dates: start: 20071107, end: 20090908
  12. PRAMIPEXOLE [Suspect]
     Dosage: 2 MG
     Route: 048
     Dates: start: 20090909
  13. MADOPAR [Suspect]
     Dosage: 6 DF
     Route: 048
     Dates: start: 19990511
  14. FLUTICASONE PROPIONATE W/SALMETEROL XINAFOATE [Concomitant]
     Indication: ASTHMA
     Dosage: 2 DF
     Dates: start: 20070815
  15. KIPRES [Concomitant]
     Indication: ASTHMA
     Dosage: 10 MG
     Route: 048
     Dates: start: 20010919
  16. UNIPHYL [Concomitant]
     Indication: ASTHMA
     Dosage: 200 MG
     Route: 048
     Dates: start: 20080317
  17. PREDNISOLONE [Concomitant]
     Indication: ASTHMA
     Dosage: 5 MG
     Route: 048
     Dates: start: 20080813
  18. MEPTIN [Concomitant]
     Indication: ASTHMA
     Dosage: UNK
     Dates: start: 19990511
  19. MAGMITT [Concomitant]
     Dosage: 990 MG
     Route: 048
     Dates: start: 20090204
  20. FELBINAC [Concomitant]
     Dosage: 140 MG
     Route: 061
     Dates: start: 20040915
  21. MUCOSAL-L [Concomitant]
     Indication: ASTHMA
     Dosage: 45 MG
     Route: 048
     Dates: start: 20020724
  22. ALESION [Concomitant]
     Dosage: 20 MG
     Route: 048
     Dates: start: 20090325
  23. MICARDIS [Concomitant]
     Dosage: 40 MG
     Route: 048
     Dates: start: 20080303
  24. PAXIL [Concomitant]
     Dosage: 10 MG
     Route: 048
     Dates: start: 20011128
  25. LUPRAC [Concomitant]
     Dosage: 4 MG
     Route: 048
     Dates: start: 20001108
  26. SYMMETREL [Concomitant]
     Dosage: 150 MG
     Route: 048
     Dates: start: 19990511
  27. DOPS [Concomitant]
     Dosage: 12 G
     Route: 048
     Dates: start: 20051012
  28. LENDORMIN [Concomitant]
     Dosage: 0.25 MG
     Dates: start: 20061011
  29. SENNOSIDE [Concomitant]
     Dosage: 24 MG
     Route: 048
     Dates: start: 20050427
  30. EVISTA [Concomitant]
     Dosage: 60 MG
     Route: 048
     Dates: start: 20080428
  31. FUROSEMIDE [Concomitant]
     Dosage: 40 MG, UNK
     Route: 048
     Dates: start: 20100426
  32. MOBIC [Concomitant]
     Dosage: 10 MG, UNK
     Route: 048
     Dates: start: 20100324

REACTIONS (7)
  - ANTIBIOTIC RESISTANT STAPHYLOCOCCUS TEST POSITIVE [None]
  - HALLUCINATION [None]
  - MALNUTRITION [None]
  - RESPIRATORY TRACT INFECTION [None]
  - SEPSIS [None]
  - SEPTIC SHOCK [None]
  - STATUS ASTHMATICUS [None]
